FAERS Safety Report 6782760-8 (Version None)
Quarter: 2010Q2

REPORT INFORMATION
  Report Type: 
  Country: None (occurrence: None)
  Receive Date: 20100621
  Receipt Date: 20100608
  Transmission Date: 20101027
  Serious: Yes (Other)
  Sender: FDA-Public Use
  Company Number: US-ELI_LILLY_AND_COMPANY-US201006002852

PATIENT
  Sex: Male

DRUGS (4)
  1. FORTEO [Suspect]
     Indication: OSTEOPOROSIS
     Dosage: 20 UG, DAILY (1/D)
  2. CEFAZOL [Concomitant]
     Dosage: 2 G, 3/D
  3. HYDROCODONE [Concomitant]
     Dosage: UNK, 3/D
  4. RANITIDINE [Concomitant]
     Dosage: 150 MG, 2/D

REACTIONS (2)
  - IMPLANT SITE ABSCESS [None]
  - OSTEOMYELITIS [None]
